FAERS Safety Report 17123792 (Version 6)
Quarter: 2020Q3

REPORT INFORMATION
  Report Type: Report from Study
  Country: JP (occurrence: JP)
  Receive Date: 20191206
  Receipt Date: 20200722
  Transmission Date: 20201102
  Serious: Yes (Hospitalization)
  Sender: FDA-Public Use
  Company Number: JP-EISAI MEDICAL RESEARCH-EC-2019-066489

PATIENT
  Age: 69 Year
  Sex: Male
  Weight: 111 kg

DRUGS (10)
  1. LENVIMA [Suspect]
     Active Substance: LENVATINIB
     Indication: HEPATOCELLULAR CARCINOMA
     Route: 048
     Dates: start: 20181120, end: 20190221
  2. LENVIMA [Suspect]
     Active Substance: LENVATINIB
     Route: 048
     Dates: start: 20190511, end: 20190515
  3. LENVIMA [Suspect]
     Active Substance: LENVATINIB
     Dosage: 5 DAYS ON/2 DAYS OFF SCHEDULE
     Route: 048
     Dates: start: 20191212
  4. LIXIANA [Suspect]
     Active Substance: EDOXABAN TOSYLATE
     Indication: MYOCARDIAL INFARCTION
     Dates: start: 20190608, end: 20190920
  5. ALBUMIN TANNATE [Concomitant]
     Active Substance: ALBUMIN BOVINE\TANNIC ACID
     Indication: DIARRHOEA
  6. LENVIMA [Suspect]
     Active Substance: LENVATINIB
     Dosage: 5 DAYS ON/2 DAYS OFF SCHEDULE
     Route: 048
     Dates: start: 20190614, end: 20190621
  7. LOPERAMIDE HYDROCHLORIDE. [Concomitant]
     Active Substance: LOPERAMIDE HYDROCHLORIDE
     Indication: DIARRHOEA
  8. LENVIMA [Suspect]
     Active Substance: LENVATINIB
     Route: 048
     Dates: start: 20190222, end: 20190510
  9. LENVIMA [Suspect]
     Active Substance: LENVATINIB
     Dosage: 5 DAYS ON/2 DAYS OFF SCHEDULE
     Route: 048
     Dates: start: 20190731, end: 20191211
  10. LIXIANA [Suspect]
     Active Substance: EDOXABAN TOSYLATE
     Indication: ATRIAL FIBRILLATION

REACTIONS (2)
  - Haemobilia [Recovered/Resolved]
  - Cholecystitis [Recovered/Resolved]

NARRATIVE: CASE EVENT DATE: 20190515
